FAERS Safety Report 5840545-0 (Version None)
Quarter: 2008Q3

REPORT INFORMATION
  Report Type: 
  Country: None (occurrence: None)
  Receive Date: 20080807
  Receipt Date: 20080725
  Transmission Date: 20090109
  Serious: Yes (Hospitalization, Other)
  Sender: FDA-Public Use
  Company Number: 2008BI017029

PATIENT
  Age: 57 Year
  Sex: Female

DRUGS (11)
  1. TYSABRI [Suspect]
     Indication: MULTIPLE SCLEROSIS
     Dosage: 300 MG; QM; IV
     Route: 042
     Dates: start: 20080421
  2. LEXAPRO (CON.) [Concomitant]
  3. TEGRETOL (CON.) [Concomitant]
  4. CLONAZEPAM (CON.) [Concomitant]
  5. AMANTADINE (CON.) [Concomitant]
  6. MIRAPEX (CON.) [Concomitant]
  7. ADVAIR (CON.) [Concomitant]
  8. EXCEDRIN (CON.) [Concomitant]
  9. BETASERON (PREV.) [Concomitant]
  10. COPAXONE (PREV.) [Concomitant]
  11. SOLU-MEDROL (PREV.) [Concomitant]

REACTIONS (7)
  - DIPLOPIA [None]
  - DIZZINESS [None]
  - FATIGUE [None]
  - INFECTION [None]
  - MULTIPLE SCLEROSIS RELAPSE [None]
  - NEURITIS [None]
  - VERTIGO [None]
